FAERS Safety Report 16220150 (Version 1)
Quarter: 2019Q2

REPORT INFORMATION
  Report Type: Spontaneous
  Country: US (occurrence: US)
  Receive Date: 20190420
  Receipt Date: 20190420
  Transmission Date: 20190711
  Serious: No
  Sender: FDA-Public Use
  Company Number: US-JNJFOC-20190333027

PATIENT
  Age: 8 Decade
  Sex: Female
  Weight: 92.99 kg

DRUGS (1)
  1. TYLENOL EXTRA STRENGTH [Suspect]
     Active Substance: ACETAMINOPHEN
     Indication: UPPER LIMB FRACTURE
     Dosage: 2 TABLETS ONE TIME
     Route: 048

REACTIONS (2)
  - Product use in unapproved indication [Unknown]
  - Pain [Not Recovered/Not Resolved]
